FAERS Safety Report 9019871 (Version 6)
Quarter: 2013Q4

REPORT INFORMATION
  Report Type: Spontaneous
  Country: US (occurrence: US)
  Receive Date: 20130118
  Receipt Date: 20131105
  Transmission Date: 20140711
  Serious: Yes (Life-Threatening, Hospitalization, Other)
  Sender: FDA-Public Use
  Company Number: US-MERCK-1301USA007526

PATIENT
  Sex: Male
  Weight: 104.31 kg

DRUGS (3)
  1. JANUVIA [Suspect]
     Indication: TYPE 2 DIABETES MELLITUS
     Dosage: 100 MG, QD
     Route: 048
     Dates: start: 20090916, end: 20111128
  2. JANUVIA [Suspect]
     Dosage: 100 MG, QD
     Route: 048
     Dates: start: 20111203, end: 20120614
  3. JANUVIA [Suspect]
     Dosage: 100 MG, QD
     Route: 048
     Dates: start: 20120604, end: 20121209

REACTIONS (24)
  - Pancreatic carcinoma [Not Recovered/Not Resolved]
  - Gastroenterostomy [Unknown]
  - Explorative laparotomy [Unknown]
  - Pancreatectomy [Unknown]
  - Alanine aminotransferase increased [Unknown]
  - Aspartate aminotransferase increased [Unknown]
  - Pancreatitis [Unknown]
  - Cholelithiasis [Not Recovered/Not Resolved]
  - Bile duct stenosis [Unknown]
  - Pancreatic neoplasm [Unknown]
  - Obstruction [Unknown]
  - Ulcer [Unknown]
  - Biliary dilatation [Unknown]
  - Gallbladder polyp [Unknown]
  - Perforation bile duct [Unknown]
  - Spinal fracture [Unknown]
  - Cervical vertebral fracture [Unknown]
  - Cholelithiasis [Unknown]
  - Hyperlipidaemia [Unknown]
  - Closed fracture manipulation [Unknown]
  - Bile duct stenosis [Unknown]
  - Lymphadenopathy [Unknown]
  - Inappropriate schedule of drug administration [Unknown]
  - Hepatic lesion [Unknown]
